FAERS Safety Report 16649170 (Version 2)
Quarter: 2019Q3

REPORT INFORMATION
  Report Type: Report from Study
  Country: US (occurrence: US)
  Receive Date: 20190730
  Receipt Date: 20190814
  Transmission Date: 20191004
  Serious: Yes (Hospitalization, Other)
  Sender: FDA-Public Use
  Company Number: US-GILEAD-2019-0420992

PATIENT
  Age: 35 Year
  Sex: Female

DRUGS (2)
  1. AZTREONAM LYSINE [Suspect]
     Active Substance: AZTREONAM LYSINE
     Indication: CYSTIC FIBROSIS LUNG
     Dosage: 75 MG, Q8H
     Route: 055
  2. KALYDECO [Concomitant]
     Active Substance: IVACAFTOR
     Indication: CYSTIC FIBROSIS LUNG
     Dosage: 1 DOSAGE FORM, BID

REACTIONS (1)
  - Cystic fibrosis [Unknown]
